FAERS Safety Report 21842994 (Version 2)
Quarter: 2023Q1

REPORT INFORMATION
  Report Type: Spontaneous
  Country: MX (occurrence: MX)
  Receive Date: 20230110
  Receipt Date: 20230208
  Transmission Date: 20230418
  Serious: No
  Sender: FDA-Public Use
  Company Number: MX-PFIZER INC-PV202300002585

PATIENT
  Sex: Female

DRUGS (1)
  1. GENOTROPIN [Suspect]
     Active Substance: SOMATROPIN
     Dosage: 16 IU
     Route: 058
     Dates: start: 20220318

REACTIONS (1)
  - Device occlusion [Recovering/Resolving]

NARRATIVE: CASE EVENT DATE: 20230104
